FAERS Safety Report 16951576 (Version 1)
Quarter: 2019Q4

REPORT INFORMATION
  Report Type: Spontaneous
  Country: None (occurrence: US)
  Receive Date: 20191023
  Receipt Date: 20191023
  Transmission Date: 20200122
  Serious: Yes (Hospitalization)
  Sender: FDA-Public Use
  Company Number: US-STI PHARMA LLC-2075958

PATIENT
  Age: 72 Year
  Sex: Female

DRUGS (1)
  1. DEXAMETHASONE. [Suspect]
     Active Substance: DEXAMETHASONE
     Route: 048

REACTIONS (2)
  - Chest discomfort [Recovering/Resolving]
  - Hypersensitivity [Recovering/Resolving]
